FAERS Safety Report 8544323 (Version 4)
Quarter: 2012Q4

REPORT INFORMATION
  Report Type: 
  Country: US (occurrence: US)
  Receive Date: 20120503
  Receipt Date: 20120829
  Transmission Date: 20130627
  Serious: Yes (Death, Other)
  Sender: FDA-Public Use
  Company Number: US-BAYER-2012-042464

PATIENT
  Age: 52 Year
  Sex: Female
  Weight: 56 kg

DRUGS (20)
  1. MAGNEVIST [Suspect]
     Indication: NUCLEAR MAGNETIC RESONANCE IMAGING ABDOMINAL
     Dosage: UNK
     Dates: start: 20050930, end: 20050930
  2. MAGNEVIST [Suspect]
     Indication: NUCLEAR MAGNETIC RESONANCE IMAGING THORACIC
     Dosage: UNK
     Dates: start: 20051001, end: 20051001
  3. MAGNEVIST [Suspect]
     Indication: NUCLEAR MAGNETIC RESONANCE IMAGING ABDOMINAL
     Dosage: UNK
     Dates: start: 20060404, end: 20060404
  4. NORMODYNE [Concomitant]
  5. VASOTEC [Concomitant]
     Dosage: 5 mg, UNK
  6. ASPIRIN [Concomitant]
     Dosage: 80 mg, UNK
  7. VITAMIN B12 [Concomitant]
  8. ADALAT [Concomitant]
     Dosage: 30 mg, UNK
  9. FOLIC ACID [Concomitant]
     Dosage: 1 mg, UNK
  10. LOPRESSOR [Concomitant]
  11. EPOETIN ALFA [Concomitant]
  12. TOPROL XL [Concomitant]
     Dosage: 50 mg, UNK
  13. LASIX [Concomitant]
     Dosage: 40 mg, UNK
  14. HYDRALAZINE [Concomitant]
     Dosage: 50 mg, QD
  15. LISINOPRIL [Concomitant]
     Dosage: 40 mg in the morning and 20 mg in the evening
  16. RENAGEL [SEVELAMER] [Concomitant]
     Dosage: 800 mg, TID
  17. CLONIDINE [Concomitant]
     Dosage: 0.3 mg, BID
  18. COZAAR [Concomitant]
     Dosage: 100 mg, QD
  19. NEPHROCAPS [Concomitant]
     Dosage: 1 DF, QD
  20. AMIODARONE [Concomitant]

REACTIONS (26)
  - Nephrogenic systemic fibrosis [None]
  - Skin disorder [None]
  - Peau d^orange [None]
  - Skin fibrosis [None]
  - Pruritus [None]
  - Joint contracture [None]
  - Oedema peripheral [None]
  - Skin induration [None]
  - Extremity contracture [None]
  - Skin discolouration [None]
  - Skin fissures [None]
  - Motor dysfunction [None]
  - Mobility decreased [None]
  - Skin tightness [None]
  - Scab [None]
  - Erythema [None]
  - Pain of skin [None]
  - Injury [None]
  - Pain [None]
  - Anxiety [None]
  - Emotional distress [None]
  - Anhedonia [None]
  - General physical health deterioration [None]
  - Deformity [None]
  - Scar [None]
  - Depression [None]
